FAERS Safety Report 6784288-8 (Version None)
Quarter: 2010Q2

REPORT INFORMATION
  Report Type: 
  Country: None (occurrence: None)
  Receive Date: 20100622
  Receipt Date: 20100609
  Transmission Date: 20101027
  Serious: Yes (Hospitalization)
  Sender: FDA-Public Use
  Company Number: US-GENZYME-FABR-1001337

PATIENT

DRUGS (7)
  1. FABRAZYME [Suspect]
     Indication: FABRY'S DISEASE
     Dosage: 45 MG, Q3W
     Route: 042
     Dates: start: 20091023
  2. FABRAZYME [Suspect]
     Dosage: 90 MG, Q2W
     Route: 042
     Dates: start: 20090421, end: 20090101
  3. COUMADIN [Concomitant]
     Indication: ANTICOAGULANT THERAPY
  4. LOVENOX [Concomitant]
     Indication: ANTICOAGULANT THERAPY
  5. VERAPAMIL [Concomitant]
     Indication: DRUG USE FOR UNKNOWN INDICATION
  6. LISINOPRIL [Concomitant]
     Indication: DRUG USE FOR UNKNOWN INDICATION
  7. ASPIRIN [Concomitant]
     Indication: ANTICOAGULANT THERAPY

REACTIONS (3)
  - ATRIAL FIBRILLATION [None]
  - CEREBRAL INFARCTION [None]
  - ISCHAEMIC STROKE [None]
